FAERS Safety Report 19997838 (Version 2)
Quarter: 2021Q4

REPORT INFORMATION
  Report Type: Spontaneous
  Country: JP (occurrence: JP)
  Receive Date: 20211026
  Receipt Date: 20211111
  Transmission Date: 20220304
  Serious: Yes (Other)
  Sender: FDA-Public Use
  Company Number: JP-UCBJ-CD202109521UCBPHAPROD

PATIENT
  Age: 4 Decade
  Sex: Female

DRUGS (1)
  1. LEVETIRACETAM [Suspect]
     Active Substance: LEVETIRACETAM
     Indication: Product used for unknown indication
     Dosage: EXCESSIVE DOSE
     Route: 048

REACTIONS (2)
  - Loss of consciousness [Recovered/Resolved]
  - Overdose [Unknown]
